FAERS Safety Report 18994971 (Version 1)
Quarter: 2021Q1

REPORT INFORMATION
  Report Type: Spontaneous
  Country: US (occurrence: US)
  Receive Date: 20210311
  Receipt Date: 20210311
  Transmission Date: 20210420
  Serious: No
  Sender: FDA-Public Use
  Company Number: US-ASTRAZENECA-2021A060359

PATIENT
  Sex: Female
  Weight: 56.2 kg

DRUGS (2)
  1. BREZTRI AEROSPHERE [Suspect]
     Active Substance: BUDESONIDE\FORMOTEROL\GLYCOPYRRONIUM
     Indication: CHRONIC OBSTRUCTIVE PULMONARY DISEASE
     Dosage: 160/9/4.8MCG, ONE PUFF TWICE A DAY
     Route: 055
     Dates: start: 20210212, end: 20210212
  2. ZOPANEX [Concomitant]
     Indication: CHRONIC OBSTRUCTIVE PULMONARY DISEASE
     Route: 055
     Dates: start: 2016

REACTIONS (2)
  - Asthenia [Unknown]
  - Pollakiuria [Unknown]
